FAERS Safety Report 9252709 (Version 2)
Quarter: 2013Q2

REPORT INFORMATION
  Report Type: Spontaneous
  Country: JP (occurrence: JP)
  Receive Date: 20130424
  Receipt Date: 20130506
  Transmission Date: 20140414
  Serious: Yes (Other)
  Sender: FDA-Public Use
  Company Number: JP-ELI_LILLY_AND_COMPANY-JP201302010044

PATIENT
  Age: 80 Year
  Sex: Female

DRUGS (2)
  1. FORTEO [Suspect]
     Indication: OSTEOPOROSIS
     Dosage: UNK
     Route: 058
     Dates: start: 20111207, end: 20130221
  2. MOHRUS [Concomitant]
     Dosage: UNK
     Route: 062

REACTIONS (3)
  - Lung neoplasm malignant [Unknown]
  - Blood alkaline phosphatase increased [Not Recovered/Not Resolved]
  - Blood acid phosphatase increased [Not Recovered/Not Resolved]
